FAERS Safety Report 23391183 (Version 1)
Quarter: 2024Q1

REPORT INFORMATION
  Report Type: Spontaneous
  Country: US (occurrence: US)
  Receive Date: 20240111
  Receipt Date: 20240111
  Transmission Date: 20240410
  Serious: No
  Sender: FDA-Public Use
  Company Number: US-DRL-USA-LIT/USA/23/0032474

PATIENT
  Age: 63 Year
  Sex: Male

DRUGS (4)
  1. IBUPROFEN [Suspect]
     Active Substance: IBUPROFEN
     Indication: Headache
  2. IPILIMUMAB [Concomitant]
     Active Substance: IPILIMUMAB
     Indication: Metastatic malignant melanoma
     Dosage: SECOND DOSE
  3. IPILIMUMAB [Concomitant]
     Active Substance: IPILIMUMAB
     Dosage: THIRD DOSE
     Dates: start: 2015
  4. IPILIMUMAB [Concomitant]
     Active Substance: IPILIMUMAB
     Dosage: FIRST DOSE

REACTIONS (1)
  - Drug ineffective [Unknown]
